FAERS Safety Report 13594047 (Version 1)
Quarter: 2017Q2

REPORT INFORMATION
  Report Type: Spontaneous
  Country: IT (occurrence: IT)
  Receive Date: 20170530
  Receipt Date: 20170530
  Transmission Date: 20170830
  Serious: Yes (Life-Threatening, Other)
  Sender: FDA-Public Use
  Company Number: IT-IMPAX LABORATORIES, INC-2017-IPXL-01519

PATIENT
  Age: 12 Month

DRUGS (1)
  1. PROPRANOLOL HYDROCHLORIDE IR [Suspect]
     Active Substance: PROPRANOLOL HYDROCHLORIDE
     Indication: INFANTILE HAEMANGIOMA
     Dosage: UNK
     Route: 048

REACTIONS (5)
  - Cardiac arrest [Unknown]
  - Dehydration [Unknown]
  - Breath holding [Unknown]
  - Respiratory tract infection [Unknown]
  - Product use in unapproved indication [Unknown]
